FAERS Safety Report 6900985-5 (Version None)
Quarter: 2010Q3

REPORT INFORMATION
  Report Type: 
  Country: None (occurrence: None)
  Receive Date: 20100803
  Receipt Date: 20100726
  Transmission Date: 20110219
  Serious: Yes (Hospitalization)
  Sender: FDA-Public Use
  Company Number: B0666965A

PATIENT
  Sex: Male

DRUGS (2)
  1. ALKERAN [Suspect]
     Route: 042
     Dates: start: 20040101, end: 20060101
  2. ZOMETA [Suspect]
     Route: 042
     Dates: start: 20040101, end: 20060101

REACTIONS (3)
  - ACUTE MYELOID LEUKAEMIA [None]
  - CHROMOSOMAL DELETION [None]
  - CYTOGENETIC ABNORMALITY [None]
